FAERS Safety Report 12113945 (Version 1)
Quarter: 2016Q1

REPORT INFORMATION
  Report Type: Spontaneous
  Country: US (occurrence: US)
  Receive Date: 20160225
  Receipt Date: 20160225
  Transmission Date: 20160526
  Serious: No
  Sender: FDA-Public Use
  Company Number: US-PFIZER INC-2016064750

PATIENT

DRUGS (1)
  1. PRISTIQ EXTENDED RELEASE [Suspect]
     Active Substance: DESVENLAFAXINE SUCCINATE
     Dosage: UNK (A HALF A TABLET FOR THE FIRST 3 DAYS)

REACTIONS (7)
  - Drug prescribing error [Unknown]
  - Presyncope [Unknown]
  - Influenza [Unknown]
  - Nasopharyngitis [Unknown]
  - Pyrexia [Unknown]
  - Thirst [Unknown]
  - Electrolyte imbalance [Unknown]
